FAERS Safety Report 4705907-3 (Version None)
Quarter: 2005Q2

REPORT INFORMATION
  Report Type: 
  Country: None (occurrence: None)
  Receive Date: 20050629
  Receipt Date: 20050617
  Transmission Date: 20051028
  Serious: Yes (Life-Threatening)
  Sender: FDA-Public Use
  Company Number: 2005090794

PATIENT
  Age: 16 Year
  Sex: Male

DRUGS (2)
  1. GENOTROPIN [Suspect]
     Indication: HYPOPITUITARISM
     Dosage: SUBCUTANEOUS
     Route: 058
     Dates: end: 20050201
  2. PREDNISOLONE [Concomitant]

REACTIONS (3)
  - APLASIA PURE RED CELL [None]
  - IMMUNODEFICIENCY [None]
  - SEPSIS [None]
